FAERS Safety Report 4340604-8 (Version None)
Quarter: 2004Q2

REPORT INFORMATION
  Report Type: 
  Country: None (occurrence: None)
  Receive Date: 20040414
  Receipt Date: 20040405
  Transmission Date: 20050107
  Serious: Yes (Disabling)
  Sender: FDA-Public Use
  Company Number: TUK2004A00026

PATIENT
  Age: 76 Year
  Sex: Female

DRUGS (6)
  1. ACTOS [Suspect]
     Indication: DIABETES MELLITUS
     Dosage: 15 MG
     Route: 048
     Dates: start: 20030116, end: 20040316
  2. ACARBOSE (ACARBOSE) [Concomitant]
  3. ASPIRIN [Concomitant]
  4. ATORVASTATIN (ATORVASTATIN) [Concomitant]
  5. GLYBURIDE [Concomitant]
  6. TRIAPIN (UNIMAX ^HOECHST^) [Concomitant]

REACTIONS (1)
  - ARTHRALGIA [None]
